FAERS Safety Report 10257754 (Version 1)
Quarter: 2014Q2

REPORT INFORMATION
  Report Type: Spontaneous
  Country: US (occurrence: None)
  Receive Date: 20140623
  Receipt Date: 20140623
  Transmission Date: 20141212
  Serious: Yes (Other)
  Sender: FDA-Public Use
  Company Number: None

PATIENT
  Age: 21 Year
  Sex: Female

DRUGS (1)
  1. HUMIRA 40 MG ABBVIE [Suspect]
     Indication: RHEUMATOID ARTHRITIS
     Dosage: HUMIRA 40 MG  EVERY OTHER WEEK  SUBQ
     Route: 058
     Dates: start: 20140528, end: 20140620

REACTIONS (3)
  - Headache [None]
  - Nausea [None]
  - Diarrhoea [None]
